FAERS Safety Report 4957173-1 (Version None)
Quarter: 2006Q1

REPORT INFORMATION
  Report Type: 
  Country: None (occurrence: None)
  Receive Date: 20060323
  Receipt Date: 20060314
  Transmission Date: 20060701
  Serious: Yes (Other)
  Sender: FDA-Public Use
  Company Number: US200603003599

PATIENT
  Sex: Female

DRUGS (1)
  1. GEMZAR [Suspect]
     Indication: PANCREATIC CARCINOMA
     Dosage: 1482 MG WEEKLY (1/W) INTRAVENOUS
     Route: 042
     Dates: start: 20060131, end: 20060131

REACTIONS (6)
  - ABASIA [None]
  - DEMENTIA [None]
  - DYSKINESIA [None]
  - DYSTONIA [None]
  - MUTISM [None]
  - TARDIVE DYSKINESIA [None]
